FAERS Safety Report 21764946 (Version 1)
Quarter: 2022Q4

REPORT INFORMATION
  Report Type: Report from Study
  Country: US (occurrence: US)
  Receive Date: 20221222
  Receipt Date: 20221222
  Transmission Date: 20230113
  Serious: No
  Sender: FDA-Public Use
  Company Number: US-ABBVIE-22K-163-4534860-00

PATIENT
  Sex: Male

DRUGS (1)
  1. HUMIRA [Suspect]
     Active Substance: ADALIMUMAB
     Indication: Ankylosing spondylitis
     Dosage: CITRATE FREE?FORM STRENGTH 40 MILLIGRAM
     Route: 058
     Dates: start: 20220826

REACTIONS (10)
  - Melanocytic naevus [Unknown]
  - Palatal disorder [Unknown]
  - Therapeutic response shortened [Unknown]
  - Rhinorrhoea [Unknown]
  - Scab [Unknown]
  - Papule [Unknown]
  - Pruritus [Unknown]
  - Nasal ulcer [Unknown]
  - Localised infection [Unknown]
  - Sneezing [Unknown]
